FAERS Safety Report 17935735 (Version 2)
Quarter: 2020Q3

REPORT INFORMATION
  Report Type: Report from Study
  Country: US (occurrence: US)
  Receive Date: 20200624
  Receipt Date: 20200714
  Transmission Date: 20201103
  Serious: No
  Sender: FDA-Public Use
  Company Number: US-KYOWAKIRIN-2020BKK010370

PATIENT

DRUGS (4)
  1. NOURIANZ [Suspect]
     Active Substance: ISTRADEFYLLINE
     Indication: PARKINSON^S DISEASE
     Dosage: 20 MG
     Route: 065
     Dates: end: 2020
  2. NOURIANZ [Suspect]
     Active Substance: ISTRADEFYLLINE
     Indication: PARKINSON^S DISEASE
  3. NOURIANZ [Suspect]
     Active Substance: ISTRADEFYLLINE
     Indication: MULTIPLE SYSTEM ATROPHY
  4. NOURIANZ [Suspect]
     Active Substance: ISTRADEFYLLINE
     Indication: MULTIPLE SYSTEM ATROPHY
     Dosage: 40 MG, QD
     Route: 048
     Dates: start: 20200627

REACTIONS (3)
  - Dry mouth [Not Recovered/Not Resolved]
  - Drug ineffective [Unknown]
  - Product use in unapproved indication [Not Recovered/Not Resolved]
